FAERS Safety Report 10064624 (Version 1)
Quarter: 2014Q2

REPORT INFORMATION
  Report Type: Spontaneous
  Country: US (occurrence: US)
  Receive Date: 20140408
  Receipt Date: 20140408
  Transmission Date: 20141212
  Serious: Yes (Hospitalization)
  Sender: FDA-Public Use
  Company Number: US-PFIZER INC-2014095444

PATIENT
  Age: 26 Year
  Sex: Male

DRUGS (2)
  1. PHENYTOIN [Suspect]
     Dosage: UNK
  2. COCAINE [Concomitant]
     Dosage: UNK

REACTIONS (7)
  - Toxicity to various agents [Unknown]
  - Drug level increased [Unknown]
  - Confusional state [Unknown]
  - Ataxia [Unknown]
  - Diplopia [Unknown]
  - Dysarthria [Unknown]
  - Nystagmus [Unknown]
